FAERS Safety Report 5278489-8 (Version None)
Quarter: 2007Q1

REPORT INFORMATION
  Report Type: 
  Country: None (occurrence: None)
  Receive Date: 20070322
  Receipt Date: 20070313
  Transmission Date: 20070707
  Serious: Yes (Hospitalization)
  Sender: FDA-Public Use
  Company Number: 2007BI005821

PATIENT
  Age: 70 Year
  Sex: Female

DRUGS (4)
  1. ZEVALIN [Suspect]
     Indication: NON-HODGKIN'S LYMPHOMA
     Dosage: ; IV
     Route: 042
  2. R-CHOP [Concomitant]
  3. R-CHOP [Concomitant]
  4. R-CHOP [Concomitant]

REACTIONS (4)
  - LUNG NEOPLASM [None]
  - PLEURISY [None]
  - PNEUMONIA LEGIONELLA [None]
  - PULMONARY MASS [None]
